FAERS Safety Report 5048655-5 (Version None)
Quarter: 2006Q3

REPORT INFORMATION
  Report Type: 
  Country: None (occurrence: None)
  Receive Date: 20060712
  Receipt Date: 20060703
  Transmission Date: 20061208
  Serious: Yes (Death)
  Sender: FDA-Public Use
  Company Number: US-KINGPHARMUSA00001-K200600865

PATIENT
  Age: 69 Year
  Sex: Male

DRUGS (9)
  1. ALTACE [Suspect]
     Dosage: 2.5 MG, QD
     Route: 048
     Dates: end: 20060523
  2. TERCIAN [Suspect]
     Indication: DELUSIONAL DISORDER, PERSECUTORY TYPE
     Dosage: 1 U, QD
     Route: 048
     Dates: start: 20060516, end: 20060523
  3. TERCIAN [Suspect]
     Dosage: IU, UNK
     Route: 048
     Dates: start: 20060516, end: 20060523
  4. GLUCOPHAGE [Suspect]
     Dosage: 1700 MG, QD
     Route: 048
     Dates: end: 20060523
  5. TAHOR [Suspect]
     Dosage: 40 MG, QD
     Route: 048
     Dates: end: 20060523
  6. NEXIUM [Suspect]
     Dosage: 20 MG, QD
     Route: 048
     Dates: end: 20060523
  7. SEROPLEX [Suspect]
     Indication: ANTIDEPRESSANT THERAPY
     Dosage: 10 MG, QD
     Route: 048
     Dates: start: 20060222, end: 20060516
  8. LASILIX [Concomitant]
  9. ASPIRIN [Concomitant]

REACTIONS (2)
  - COMPLETED SUICIDE [None]
  - PARANOIA [None]
